FAERS Safety Report 8955087 (Version 1)
Quarter: 2012Q4

REPORT INFORMATION
  Report Type: Report from Study
  Country: US (occurrence: US)
  Receive Date: 20121207
  Receipt Date: 20121207
  Transmission Date: 20130627
  Serious: Yes (Hospitalization)
  Sender: FDA-Public Use
  Company Number: US-ROCHE-1046505

PATIENT
  Age: 78 None
  Sex: Female
  Weight: 57.2 kg

DRUGS (6)
  1. CAPECITABINE [Suspect]
     Indication: BREAST CANCER METASTATIC
     Route: 048
     Dates: start: 20111128
  2. CAPECITABINE [Suspect]
     Route: 048
     Dates: start: 201110
  3. LISINOPRIL [Concomitant]
     Indication: HYPERTENSION
     Route: 048
  4. TEGRETOL [Concomitant]
     Indication: TRIGEMINAL NEURALGIA
     Route: 048
  5. SERAX (UNITED STATES) [Concomitant]
     Indication: ANXIETY
     Dosage: 1-2 tablets
     Route: 048
  6. HERBAL DIURETIC NOS [Concomitant]
     Indication: OEDEMA PERIPHERAL
     Route: 048
     Dates: start: 201211

REACTIONS (17)
  - Fatigue [Not Recovered/Not Resolved]
  - Dizziness [Unknown]
  - Stomatitis [Recovered/Resolved]
  - Insomnia [Not Recovered/Not Resolved]
  - Anxiety [Not Recovered/Not Resolved]
  - Panic attack [Not Recovered/Not Resolved]
  - Alopecia [Not Recovered/Not Resolved]
  - Feeling hot [Not Recovered/Not Resolved]
  - Diarrhoea [Not Recovered/Not Resolved]
  - Pancreatitis [Recovered/Resolved]
  - Pain [Not Recovered/Not Resolved]
  - Clostridium difficile infection [Recovered/Resolved]
  - Diarrhoea [Recovered/Resolved]
  - Oedema peripheral [Not Recovered/Not Resolved]
  - Joint swelling [Not Recovered/Not Resolved]
  - Weight decreased [Recovered/Resolved]
  - Erythema [Not Recovered/Not Resolved]
